FAERS Safety Report 6988770-X (Version None)
Quarter: 2010Q3

REPORT INFORMATION
  Report Type: 
  Country: None (occurrence: None)
  Receive Date: 20100916
  Receipt Date: 20100902
  Transmission Date: 20110219
  Serious: Yes (Other)
  Sender: FDA-Public Use
  Company Number: BR-GENENTECH-306326

PATIENT
  Sex: Female
  Weight: 91 kg

DRUGS (12)
  1. RITUXIMAB [Suspect]
     Indication: SYSTEMIC LUPUS ERYTHEMATOSUS
     Dosage: UNK
     Route: 042
     Dates: start: 20090909
  2. RITUXIMAB [Suspect]
     Dosage: UNK
     Route: 042
  3. AZATHIOPRINE [Concomitant]
     Indication: IMMUNODEFICIENCY
     Dosage: 50 MG, UNK
     Dates: start: 20090101
  4. TYLENOL [Concomitant]
     Indication: PAIN
     Dosage: 750 MG, UNK
  5. LOSARTAN POTASSIUM [Concomitant]
     Indication: PRODUCT USED FOR UNKNOWN INDICATION
     Dosage: UNK
  6. TYLEX [Concomitant]
     Indication: PRODUCT USED FOR UNKNOWN INDICATION
     Dosage: UNK
  7. CORTISONE ACETATE [Concomitant]
     Indication: PRODUCT USED FOR UNKNOWN INDICATION
     Dosage: UNK
  8. METFORMIN HYDROCHLORIDE [Concomitant]
     Indication: PRODUCT USED FOR UNKNOWN INDICATION
     Dosage: 500 MG, UNK
  9. ACETAMINOPHEN [Concomitant]
     Indication: PRODUCT USED FOR UNKNOWN INDICATION
     Dosage: 350 MG, UNK
  10. AMITRIPTILINA [Concomitant]
     Indication: PRODUCT USED FOR UNKNOWN INDICATION
     Dosage: 7.5 MG, UNK
  11. CODEINE [Concomitant]
     Indication: PRODUCT USED FOR UNKNOWN INDICATION
     Dosage: 25 MG, UNK
  12. RANITIDINE [Concomitant]
     Indication: PRODUCT USED FOR UNKNOWN INDICATION
     Dosage: 150 MG, UNK

REACTIONS (15)
  - DIZZINESS [None]
  - DYSPEPSIA [None]
  - FEELING HOT [None]
  - HEADACHE [None]
  - INAPPROPRIATE SCHEDULE OF DRUG ADMINISTRATION [None]
  - LOWER EXTREMITY MASS [None]
  - MALAISE [None]
  - MYALGIA [None]
  - OEDEMA PERIPHERAL [None]
  - PROTEINURIA [None]
  - PRURITUS [None]
  - PYREXIA [None]
  - SOMNOLENCE [None]
  - VISION BLURRED [None]
  - WOUND [None]
